FAERS Safety Report 12216786 (Version 8)
Quarter: 2018Q1

REPORT INFORMATION
  Report Type: Spontaneous
  Country: US (occurrence: US)
  Receive Date: 20160329
  Receipt Date: 20180208
  Transmission Date: 20180508
  Serious: Yes (Other)
  Sender: FDA-Public Use
  Company Number: US-PFIZER INC-2016180333

PATIENT
  Age: 71 Year
  Sex: Female
  Weight: 71.21 kg

DRUGS (21)
  1. CHANTIX [Suspect]
     Active Substance: VARENICLINE TARTRATE
     Dosage: UNK
     Route: 048
     Dates: start: 20170918, end: 201710
  2. ZOLOFT [Concomitant]
     Active Substance: SERTRALINE HYDROCHLORIDE
     Indication: DEPRESSION
     Dosage: UNK
     Dates: start: 20170510, end: 20171020
  3. CHANTIX [Suspect]
     Active Substance: VARENICLINE TARTRATE
     Dosage: UNK
     Route: 048
     Dates: start: 201611, end: 20170205
  4. CHANTIX [Suspect]
     Active Substance: VARENICLINE TARTRATE
     Dosage: 1 MG ONE TABLET IN THE MORNING AND AT NIGHT
     Route: 048
     Dates: start: 201701, end: 20170201
  5. CHANTIX [Suspect]
     Active Substance: VARENICLINE TARTRATE
     Dosage: UNK
     Route: 048
     Dates: start: 20170524
  6. NEXIUM 24HR [Concomitant]
     Active Substance: ESOMEPRAZOLE MAGNESIUM
     Dosage: 23 MG
  7. LEXAPRO [Concomitant]
     Active Substance: ESCITALOPRAM OXALATE
     Indication: DEPRESSION
     Dosage: 10 MG, DAILY
     Route: 048
     Dates: start: 20171021
  8. CHANTIX [Suspect]
     Active Substance: VARENICLINE TARTRATE
     Indication: SMOKING CESSATION THERAPY
     Dosage: UNK, FOR 3 MONTHS
     Route: 048
     Dates: start: 201508
  9. ATENOLOL. [Concomitant]
     Active Substance: ATENOLOL
     Indication: HYPERTENSION
     Dosage: UNK UNK, 1X/DAY 50/25 MG, ONCE A DAY
  10. SIMVASTATIN. [Concomitant]
     Active Substance: SIMVASTATIN
     Indication: BLOOD CHOLESTEROL
     Dosage: 10 MG, DAILY
     Route: 048
     Dates: start: 201706
  11. SPIRIVA [Concomitant]
     Active Substance: TIOTROPIUM BROMIDE MONOHYDRATE
     Indication: EMPHYSEMA
     Dosage: 18 UG, DAILY
     Route: 055
     Dates: start: 2015
  12. CHANTIX [Suspect]
     Active Substance: VARENICLINE TARTRATE
     Dosage: 1 MG, 2X/DAY (ONE IN THE MORNING AND ONE IN THE EVENING)
     Route: 048
     Dates: start: 20160327, end: 201604
  13. CHANTIX [Suspect]
     Active Substance: VARENICLINE TARTRATE
     Dosage: ONE PILL A DAY
     Route: 048
     Dates: start: 20170317, end: 20170321
  14. CHANTIX [Suspect]
     Active Substance: VARENICLINE TARTRATE
     Dosage: TWO PILLS A DAY
     Route: 048
     Dates: start: 20170321
  15. SIMVASTATIN. [Concomitant]
     Active Substance: SIMVASTATIN
     Indication: BLOOD CHOLESTEROL INCREASED
     Dosage: 1 DF, DAILY
     Route: 048
     Dates: end: 2016
  16. CHANTIX [Suspect]
     Active Substance: VARENICLINE TARTRATE
     Dosage: UNK
     Route: 048
     Dates: start: 20161002, end: 20161026
  17. LOVASTATIN. [Concomitant]
     Active Substance: LOVASTATIN
     Indication: BLOOD CHOLESTEROL
     Dosage: 10 MG, 1X/DAY
     Dates: start: 201605
  18. REMERON [Concomitant]
     Active Substance: MIRTAZAPINE
     Indication: INSOMNIA
     Dosage: 15 MG, DAILY
     Route: 048
     Dates: start: 20171021
  19. ATENOLOL W/CHLORTALIDONE [Concomitant]
     Active Substance: ATENOLOL\CHLORTHALIDONE
     Indication: HYPERTENSION
     Dosage: 1 DF, DAILY [ATENOLOL:50 MG, CHLORTALIDONE: 25 MG]
     Route: 048
  20. CHANTIX [Suspect]
     Active Substance: VARENICLINE TARTRATE
     Dosage: UNK
     Route: 048
     Dates: end: 20170519
  21. CHANTIX [Suspect]
     Active Substance: VARENICLINE TARTRATE
     Dosage: TWO PILLS A DAY
     Route: 048
     Dates: start: 20170620, end: 20170910

REACTIONS (9)
  - Hypersomnia [Recovering/Resolving]
  - Pancreatic cyst [Not Recovered/Not Resolved]
  - Fatigue [Recovered/Resolved]
  - Apathy [Unknown]
  - Aneurysm [Unknown]
  - Hyperphagia [Recovering/Resolving]
  - Insomnia [Recovered/Resolved]
  - Drug ineffective [Unknown]
  - Nausea [Unknown]

NARRATIVE: CASE EVENT DATE: 2015
